FAERS Safety Report 9314932 (Version 1)
Quarter: 2013Q2

REPORT INFORMATION
  Report Type: Report from Study
  Country: US (occurrence: US)
  Receive Date: 20130529
  Receipt Date: 20130529
  Transmission Date: 20140414
  Serious: Yes (Other)
  Sender: FDA-Public Use
  Company Number: US-BAXTER-2013BAX019970

PATIENT
  Sex: Male

DRUGS (1)
  1. FEIBA [Suspect]
     Indication: PRODUCT USED FOR UNKNOWN INDICATION
     Dosage: ON-DEMAND
     Route: 065

REACTIONS (2)
  - Drug ineffective [Recovered/Resolved]
  - Haemorrhage [Recovered/Resolved]
